FAERS Safety Report 12102828 (Version 1)
Quarter: 2016Q1

REPORT INFORMATION
  Report Type: Other
  Country: US (occurrence: US)
  Receive Date: 20160222
  Receipt Date: 20160222
  Transmission Date: 20160526
  Serious: Yes (Disabling)
  Sender: FDA-Public Use
  Company Number: US-ACORDA-ACO_112973_2015

PATIENT
  Sex: Female

DRUGS (1)
  1. AMPYRA [Suspect]
     Active Substance: DALFAMPRIDINE
     Indication: GAIT DISTURBANCE
     Dosage: 10 MG, Q 12 HRS
     Route: 048
     Dates: start: 2009, end: 2011

REACTIONS (10)
  - Wheelchair user [Unknown]
  - Muscular weakness [Unknown]
  - Dysstasia [Unknown]
  - Asthenia [Unknown]
  - Headache [Recovered/Resolved]
  - Loss of consciousness [Recovered/Resolved]
  - Skull fracture [Recovered/Resolved]
  - Multiple sclerosis [Unknown]
  - Fall [Recovered/Resolved]
  - Walking aid user [Unknown]

NARRATIVE: CASE EVENT DATE: 2009
